FAERS Safety Report 6598963-1 (Version None)
Quarter: 2010Q1

REPORT INFORMATION
  Report Type: 
  Country: None (occurrence: None)
  Receive Date: 20100224
  Receipt Date: 20090416
  Transmission Date: 20100710
  Serious: No
  Sender: FDA-Public Use
  Company Number: US-BRISTOL-MYERS SQUIBB COMPANY-14593099

PATIENT
  Age: 52 Year
  Sex: Female

DRUGS (1)
  1. GLUCOPHAGE [Suspect]
     Dates: start: 19950101, end: 20040101

REACTIONS (1)
  - DRUG INEFFECTIVE [None]
